FAERS Safety Report 5954401-0 (Version None)
Quarter: 2008Q4

REPORT INFORMATION
  Report Type: 
  Country: None (occurrence: None)
  Receive Date: 20081113
  Receipt Date: 20081113
  Transmission Date: 20090506
  Serious: Yes (Death)
  Sender: FDA-Public Use
  Company Number: None

PATIENT
  Sex: Male
  Weight: 44.4525 kg

DRUGS (1)
  1. FLAGYL [Suspect]
     Indication: CLOSTRIDIAL INFECTION

REACTIONS (4)
  - DRUG HYPERSENSITIVITY [None]
  - OPEN WOUND [None]
  - SEPSIS [None]
  - STEVENS-JOHNSON SYNDROME [None]
